FAERS Safety Report 19464986 (Version 2)
Quarter: 2021Q2

REPORT INFORMATION
  Report Type: Spontaneous
  Country: US (occurrence: US)
  Receive Date: 20210626
  Receipt Date: 20210626
  Transmission Date: 20210717
  Serious: Yes (Life-Threatening, Hospitalization, Other)
  Sender: FDA-Public Use
  Company Number: US-ACCORD-229127

PATIENT
  Age: 21 Year
  Sex: Female

DRUGS (3)
  1. AMITRIPTYLINE [Suspect]
     Active Substance: AMITRIPTYLINE
     Indication: PRODUCT USED FOR UNKNOWN INDICATION
  2. CODEINE [Suspect]
     Active Substance: CODEINE
     Indication: NASOPHARYNGITIS
     Dosage: SYRUP
  3. DIPHENHYDRAMINE. [Suspect]
     Active Substance: DIPHENHYDRAMINE
     Indication: NASOPHARYNGITIS
     Dosage: SYRUP

REACTIONS (8)
  - Epistaxis [Unknown]
  - Hypertension [Unknown]
  - Contusion [Unknown]
  - Tachycardia [Unknown]
  - Unresponsive to stimuli [Recovering/Resolving]
  - Encephalopathy [Recovering/Resolving]
  - Overdose [Unknown]
  - Suicide attempt [Unknown]
